FAERS Safety Report 21379426 (Version 1)
Quarter: 2022Q3

REPORT INFORMATION
  Report Type: Spontaneous
  Country: US (occurrence: US)
  Receive Date: 20220927
  Receipt Date: 20220927
  Transmission Date: 20221027
  Serious: Yes (Other)
  Sender: FDA-Public Use
  Company Number: US-SA-SAC20220923000780

PATIENT
  Age: 65 Year
  Sex: Male

DRUGS (1)
  1. ZANTAC [Suspect]
     Active Substance: RANITIDINE HYDROCHLORIDE
     Indication: Dyspepsia
     Dosage: 300 MG FREQ: OTHER
     Route: 065
     Dates: start: 198701, end: 201801

REACTIONS (2)
  - Hepatic cancer stage II [Unknown]
  - Lung carcinoma cell type unspecified stage II [Unknown]

NARRATIVE: CASE EVENT DATE: 20210401
